FAERS Safety Report 15217672 (Version 1)
Quarter: 2018Q3

REPORT INFORMATION
  Report Type: Other
  Country: None (occurrence: JP)
  Receive Date: 20180730
  Receipt Date: 20180730
  Transmission Date: 20181010
  Serious: Yes (Death)
  Sender: FDA-Public Use
  Company Number: JP-LABORATOIRE HRA PHARMA-2052961

PATIENT
  Age: 71 Year
  Sex: Male

DRUGS (1)
  1. METOPIRONE [Suspect]
     Active Substance: METYRAPONE
     Indication: ECTOPIC ACTH SYNDROME

REACTIONS (2)
  - Pneumonia cytomegaloviral [None]
  - Pneumocystis jirovecii pneumonia [None]
